FAERS Safety Report 4432247-2 (Version None)
Quarter: 2004Q3

REPORT INFORMATION
  Report Type: 
  Country: None (occurrence: None)
  Receive Date: 20040820
  Receipt Date: 20040309
  Transmission Date: 20050211
  Serious: Yes (Disabling)
  Sender: FDA-Public Use
  Company Number: S04-FRA-03686-01

PATIENT
  Age: 39 Year
  Sex: Female
  Weight: 56 kg

DRUGS (1)
  1. CITALOPRAM HYDROBROMIDE [Suspect]
     Indication: PANIC DISORDER
     Dosage: 20 MG QD PO
     Route: 048
     Dates: start: 20020410, end: 20040411

REACTIONS (4)
  - FATIGUE [None]
  - HEADACHE [None]
  - IRRITABILITY [None]
  - METRORRHAGIA [None]
